FAERS Safety Report 9030993 (Version 1)
Quarter: 2013Q1

REPORT INFORMATION
  Report Type: Spontaneous
  Country: DE (occurrence: DE)
  Receive Date: 20130123
  Receipt Date: 20130123
  Transmission Date: 20140127
  Serious: Yes (Hospitalization)
  Sender: FDA-Public Use
  Company Number: PHHY2013DE005313

PATIENT
  Age: 63 Year
  Sex: Male

DRUGS (12)
  1. BASILIXIMAB [Suspect]
     Indication: RENAL TRANSPLANT
     Dosage: 20 MG, UNK
     Route: 042
     Dates: start: 20120110
  2. PREDNISOLONE [Suspect]
     Dosage: 15 MG, BID
     Dates: start: 20120110
  3. PREDNISOLONE [Suspect]
     Dosage: 12.5 MG, BID
     Dates: start: 20120128
  4. TACROLIMUS [Suspect]
     Dosage: 11 MG, UNK
     Route: 048
     Dates: start: 20120110
  5. CELLCEPT [Suspect]
     Indication: RENAL TRANSPLANT
     Dosage: 1000 MG, BID
     Route: 048
     Dates: start: 20120110
  6. COVANCE [Concomitant]
     Dosage: 20 MG, UNK
  7. CONAN [Concomitant]
     Dosage: 10 MG, UNK
  8. FLECAINIDE [Concomitant]
     Dosage: 50 MG, UNK
  9. DELIX [Concomitant]
     Dosage: 25 MG, UNK
  10. OXIS [Concomitant]
     Dosage: 12 UG, UNK
  11. OMACOR [Concomitant]
     Dosage: 2 DF, UNK
  12. UDILIV [Concomitant]
     Dosage: UNK
     Dates: end: 20120125

REACTIONS (5)
  - Hypertension [Unknown]
  - Heart rate increased [Unknown]
  - Chest pain [Unknown]
  - Electrocardiogram abnormal [Unknown]
  - Dyspnoea [Unknown]
